FAERS Safety Report 7565656-3 (Version None)
Quarter: 2011Q2

REPORT INFORMATION
  Report Type: 
  Country: None (occurrence: None)
  Receive Date: 20110616
  Receipt Date: 20110609
  Transmission Date: 20111010
  Serious: Yes (Other)
  Sender: FDA-Public Use
  Company Number: 1000019852

PATIENT
  Age: 22 Year
  Sex: Male
  Weight: 93.44 kg

DRUGS (1)
  1. TEFLARO [Suspect]
     Indication: CELLULITIS
     Dosage: 600 MG, INTRAVENOUS (NOT OTHERWISE SPECIFIED)
     Route: 042
     Dates: start: 20110315, end: 20110317

REACTIONS (12)
  - ANAEMIA [None]
  - CONDITION AGGRAVATED [None]
  - BODY HEIGHT DECREASED [None]
  - HAEMOLYTIC ANAEMIA [None]
  - SWELLING [None]
  - BLOOD ALBUMIN DECREASED [None]
  - LYMPHADENITIS [None]
  - ANTIBIOTIC RESISTANT STAPHYLOCOCCUS TEST POSITIVE [None]
  - PAIN [None]
  - VERTEBRAL WEDGING [None]
  - CELLULITIS [None]
  - PURULENT DISCHARGE [None]
